FAERS Safety Report 25870774 (Version 1)
Quarter: 2025Q4

REPORT INFORMATION
  Report Type: Spontaneous
  Country: US (occurrence: None)
  Receive Date: 20251001
  Receipt Date: 20251001
  Transmission Date: 20260117
  Serious: Yes (Life-Threatening)
  Sender: FDA-CTU
  Company Number: None

PATIENT
  Age: 84 Year
  Sex: Female
  Weight: 81 kg

DRUGS (8)
  1. CLARISCAN [Suspect]
     Active Substance: GADOTERATE MEGLUMINE
     Indication: Arthralgia
     Dosage: OTHER FREQUENCY : ONCE;?
     Route: 040
     Dates: start: 20250924, end: 20250924
  2. fluticasone (FLONASE) 50 MCG/ACT nasal spray [Concomitant]
  3. gabapentin (NEURONTIN) 300 MG capsule [Concomitant]
  4. levothyroxine (SYNTHROID) 75 MCG tablet [Concomitant]
  5. losartan (COZAAR) 50 MG tablet [Concomitant]
  6. meloxicam (MOBIC) 15 MG tablet [Concomitant]
  7. omeprazole (PRILOSEC) 20 MG capsule [Concomitant]
  8. venlafaxine (EFFEXOR-XR) 150 MG 24 hr capsule [Concomitant]

REACTIONS (1)
  - Anaphylactic reaction [None]

NARRATIVE: CASE EVENT DATE: 20250924
